FAERS Safety Report 5788806-8 (Version None)
Quarter: 2008Q2

REPORT INFORMATION
  Report Type: 
  Country: None (occurrence: None)
  Receive Date: 20080618
  Receipt Date: 20071217
  Transmission Date: 20081010
  Serious: Yes (Hospitalization)
  Sender: FDA-Public Use
  Company Number: 200718731US

PATIENT
  Age: 32 Year
  Sex: Male

DRUGS (5)
  1. LANTUS [Suspect]
     Indication: TYPE 1 DIABETES MELLITUS
     Dosage: BID
  2. HUMALOG [Concomitant]
  3. NOVOLOG [Concomitant]
  4. INSULIN DETEMIR (LEVEMIR) [Concomitant]
  5. OTHER MEDICATIONS [Concomitant]

REACTIONS (1)
  - HYPERGLYCAEMIA [None]
